FAERS Safety Report 23423105 (Version 1)
Quarter: 2024Q1

REPORT INFORMATION
  Report Type: Spontaneous
  Country: IT (occurrence: None)
  Receive Date: 20240119
  Receipt Date: 20240119
  Transmission Date: 20240409
  Serious: Yes (Death, Hospitalization)
  Sender: FDA-Public Use
  Company Number: 2024A011940

PATIENT
  Age: 66 Year
  Sex: Male

DRUGS (11)
  1. EVUSHELD [Suspect]
     Active Substance: CILGAVIMAB\TIXAGEVIMAB
     Indication: COVID-19 prophylaxis
     Route: 030
     Dates: start: 20220714, end: 20220714
  2. AZACITIDINE [Concomitant]
     Active Substance: AZACITIDINE
     Indication: Lymphangioleiomyomatosis
  3. VENETOCLAX [Concomitant]
     Active Substance: VENETOCLAX
     Indication: Lymphangioleiomyomatosis
     Route: 048
  4. BISOPROLOL FUMARATE [Concomitant]
     Active Substance: BISOPROLOL FUMARATE
     Indication: Hypertension
     Dosage: 2.5MG UNKNOWN
     Route: 048
  5. ACYCLOVIR [Concomitant]
     Active Substance: ACYCLOVIR
     Indication: Herpes simplex
     Dosage: 400.0MG UNKNOWN
     Route: 048
  6. CHOLECALCIFEROL [Concomitant]
     Active Substance: CHOLECALCIFEROL
     Indication: Vitamin D deficiency
     Dosage: DOSAGE: 25000 MEASUREMENT UNIT: UNIT INTERNATIONAL, IN THOUSANDS
     Route: 048
  7. DANAZOL [Concomitant]
     Active Substance: DANAZOL
     Dosage: 400.0MG UNKNOWN
     Route: 048
  8. DELTA CORTENE [Concomitant]
     Indication: Rheumatoid arthritis
     Dosage: 25.0MG UNKNOWN
     Route: 048
  9. ALFUZOSIN HYDROCHLORIDE [Concomitant]
     Active Substance: ALFUZOSIN HYDROCHLORIDE
     Indication: Benign prostatic hyperplasia
     Dosage: 10.0MG UNKNOWN
     Route: 048
  10. FOLIC ACID SODIUM SALT [Concomitant]
     Indication: Folate deficiency
     Dosage: 10.0MG UNKNOWN
     Route: 048
  11. PANTOPRAZOLE [Concomitant]
     Active Substance: PANTOPRAZOLE
     Indication: Gastrooesophageal reflux disease
     Dosage: 40.0MG UNKNOWN
     Route: 048

REACTIONS (2)
  - COVID-19 [Fatal]
  - Drug ineffective [Unknown]

NARRATIVE: CASE EVENT DATE: 20221110
